FAERS Safety Report 4579783-6 (Version None)
Quarter: 2005Q1

REPORT INFORMATION
  Report Type: 
  Country: None (occurrence: None)
  Receive Date: 20050214
  Receipt Date: 20040602
  Transmission Date: 20050727
  Serious: Yes (Hospitalization)
  Sender: FDA-Public Use
  Company Number: 200411895JP

PATIENT
  Age: 53 Year
  Sex: Female

DRUGS (12)
  1. ARAVA [Suspect]
     Indication: RHEUMATOID ARTHRITIS
     Route: 048
     Dates: start: 20031006, end: 20040206
  2. LOXONIN [Concomitant]
     Route: 048
  3. PREDNISOLONE [Concomitant]
     Indication: RHEUMATOID ARTHRITIS
     Route: 048
  4. MOVER [Concomitant]
     Route: 048
     Dates: start: 20031005
  5. BENET [Concomitant]
     Indication: OSTEOPOROSIS
     Route: 048
  6. SALAZOPYRIN [Concomitant]
     Route: 048
  7. KELNAC [Concomitant]
     Indication: GASTRITIS
     Route: 048
  8. GASTER [Concomitant]
     Indication: GASTRITIS
     Route: 048
  9. NIVADIL [Concomitant]
     Indication: HYPOTENSION
     Route: 048
  10. FEROMIA [Concomitant]
     Indication: IRON DEFICIENCY
     Route: 048
  11. LASIX [Concomitant]
     Indication: OEDEMA PERIPHERAL
     Route: 048
  12. METHOTREXATE [Concomitant]
     Dosage: DOSE: 6MG/WEEK
     Route: 048
     Dates: start: 20020107, end: 20031005

REACTIONS (16)
  - ABDOMINAL PAIN [None]
  - BLOOD ALKALINE PHOSPHATASE INCREASED [None]
  - BLOOD LACTATE DEHYDROGENASE INCREASED [None]
  - BLOOD URINE PRESENT [None]
  - CHEST PAIN [None]
  - DIARRHOEA [None]
  - HAEMATOCRIT DECREASED [None]
  - HAEMOGLOBIN DECREASED [None]
  - MUSCULOSKELETAL STIFFNESS [None]
  - PLATELET COUNT INCREASED [None]
  - PLEURAL EFFUSION [None]
  - PLEURISY [None]
  - PNEUMONIA [None]
  - POLYARTHRITIS [None]
  - PROTEIN URINE PRESENT [None]
  - RED BLOOD CELL COUNT DECREASED [None]
